FAERS Safety Report 12929748 (Version 2)
Quarter: 2016Q4

REPORT INFORMATION
  Report Type: Report from Study
  Country: US (occurrence: US)
  Receive Date: 20161110
  Receipt Date: 20161208
  Transmission Date: 20170207
  Serious: Yes (Hospitalization, Other)
  Sender: FDA-Public Use
  Company Number: US-ARIAD-2016US007119

PATIENT
  Sex: Female

DRUGS (2)
  1. ICLUSIG [Suspect]
     Active Substance: PONATINIB
     Dosage: 45 MG, QD
     Route: 048
  2. ICLUSIG [Suspect]
     Active Substance: PONATINIB
     Indication: PLASMA CELL MYELOMA
     Dosage: 45 MG, QD
     Route: 048
     Dates: start: 20161013

REACTIONS (9)
  - Speech disorder [Unknown]
  - Protein total increased [Unknown]
  - Off label use [Unknown]
  - Night sweats [Unknown]
  - Disturbance in attention [Unknown]
  - Confusional state [Unknown]
  - Haemoglobin decreased [Not Recovered/Not Resolved]
  - Blood calcium increased [Unknown]
  - Diarrhoea [Unknown]
